FAERS Safety Report 10196266 (Version 1)
Quarter: 2014Q2

REPORT INFORMATION
  Report Type: Spontaneous
  Country: US (occurrence: US)
  Receive Date: 20140527
  Receipt Date: 20140527
  Transmission Date: 20141212
  Serious: Yes (Other)
  Sender: FDA-Public Use
  Company Number: US-SA-2014SA067150

PATIENT
  Age: 58 Year
  Sex: Female

DRUGS (1)
  1. FABRAZYME [Suspect]
     Indication: FABRY^S DISEASE
     Route: 042
     Dates: start: 20140115, end: 20140510

REACTIONS (3)
  - Atrial fibrillation [Unknown]
  - Palpitations [Unknown]
  - Anxiety [Unknown]
